FAERS Safety Report 12087689 (Version 1)
Quarter: 2016Q1

REPORT INFORMATION
  Report Type: Spontaneous
  Country: US (occurrence: US)
  Receive Date: 20160217
  Receipt Date: 20160217
  Transmission Date: 20160526
  Serious: No
  Sender: FDA-Public Use
  Company Number: US-ALLERGAN-1522306US

PATIENT
  Age: 58 Year
  Sex: Female
  Weight: 97.96 kg

DRUGS (3)
  1. OASIS PLUS [Concomitant]
     Route: 047
  2. FUROSEMIDE. [Concomitant]
     Active Substance: FUROSEMIDE
     Indication: DIURETIC THERAPY
  3. RESTASIS [Suspect]
     Active Substance: CYCLOSPORINE
     Indication: DRY EYE
     Dosage: 2 GTT, BID
     Route: 047
     Dates: start: 20151021, end: 20151026

REACTIONS (3)
  - Hypersensitivity [Recovered/Resolved]
  - Eye pain [Recovered/Resolved]
  - Vision blurred [Recovered/Resolved]

NARRATIVE: CASE EVENT DATE: 20151021
